FAERS Safety Report 7948820-0 (Version None)
Quarter: 2011Q4

REPORT INFORMATION
  Report Type: 
  Country: None (occurrence: None)
  Receive Date: 20111130
  Receipt Date: 20111122
  Transmission Date: 20120403
  Serious: Yes (Hospitalization, Other)
  Sender: FDA-Public Use
  Company Number: JP-AMGEN-JPNCT2011045588

PATIENT
  Age: 57 Year
  Sex: Male
  Weight: 62 kg

DRUGS (8)
  1. LEVOLEUCOVORIN CALCIUM [Suspect]
     Indication: COLORECTAL CANCER
     Route: 041
     Dates: start: 20101105, end: 20110428
  2. FLUOROURACIL [Suspect]
     Indication: COLORECTAL CANCER
     Route: 040
     Dates: start: 20101105, end: 20110428
  3. LANSOPRAZOLE [Concomitant]
  4. IRINOTECAN HCL [Suspect]
     Indication: COLORECTAL CANCER
     Route: 041
     Dates: start: 20101105, end: 20110428
  5. FLUOROURACIL [Suspect]
     Route: 041
     Dates: start: 20101105, end: 20110428
  6. LANSOPRAZOLE [Concomitant]
     Indication: GASTROOESOPHAGEAL REFLUX DISEASE
     Route: 048
  7. PANITUMUMAB [Suspect]
     Indication: COLORECTAL CANCER
     Dosage: 6 MG/KG, Q2WK
     Route: 041
     Dates: start: 20101022, end: 20110513
  8. PANITUMUMAB [Suspect]
     Dosage: 6 MG/KG, Q2WK
     Dates: start: 20110805

REACTIONS (3)
  - INTERSTITIAL LUNG DISEASE [None]
  - DECREASED APPETITE [None]
  - DERMATITIS ACNEIFORM [None]
